FAERS Safety Report 9696185 (Version 3)
Quarter: 2015Q2

REPORT INFORMATION
  Report Type: Spontaneous
  Country: US (occurrence: US)
  Receive Date: 20131119
  Receipt Date: 20150602
  Transmission Date: 20150821
  Serious: Yes (Disabling, Other)
  Sender: FDA-Public Use
  Company Number: US-NOVEN-13US008141

PATIENT
  Age: 10 Year
  Sex: Male

DRUGS (1)
  1. DAYTRANA [Suspect]
     Active Substance: METHYLPHENIDATE
     Indication: ATTENTION DEFICIT/HYPERACTIVITY DISORDER
     Dosage: UNK
     Route: 062
     Dates: start: 201201, end: 201208

REACTIONS (2)
  - Vitiligo [Not Recovered/Not Resolved]
  - Psychological trauma [Not Recovered/Not Resolved]

NARRATIVE: CASE EVENT DATE: 2012
